FAERS Safety Report 5377977-3 (Version None)
Quarter: 2007Q2

REPORT INFORMATION
  Report Type: 
  Country: None (occurrence: None)
  Receive Date: 20070629
  Receipt Date: 20070621
  Transmission Date: 20071010
  Serious: Yes (Hospitalization)
  Sender: FDA-Public Use
  Company Number: 2007BI011402

PATIENT
  Age: 71 Year
  Sex: Male
  Weight: 97.0698 kg

DRUGS (1)
  1. AVONEX [Suspect]
     Indication: MULTIPLE SCLEROSIS
     Dosage: 30 UG; QW; IM
     Route: 030
     Dates: start: 20060117

REACTIONS (2)
  - POOR PERIPHERAL CIRCULATION [None]
  - VASCULAR BYPASS GRAFT [None]
